FAERS Safety Report 4343206-2 (Version None)
Quarter: 2004Q1

REPORT INFORMATION
  Report Type: 
  Country: None (occurrence: None)
  Receive Date: 20040325
  Receipt Date: 20040116
  Transmission Date: 20041129
  Serious: No
  Sender: FDA-Public Use
  Company Number: USA040156900

PATIENT
  Age: 84 Year

DRUGS (2)
  1. FORTEO [Suspect]
     Dates: start: 20031222
  2. VIOXX [Concomitant]

REACTIONS (4)
  - GINGIVAL PAIN [None]
  - GLOSSODYNIA [None]
  - SINUSITIS [None]
  - TOOTHACHE [None]
